FAERS Safety Report 7048945-0 (Version None)
Quarter: 2010Q4

REPORT INFORMATION
  Report Type: 
  Country: None (occurrence: None)
  Receive Date: 20101008
  Receipt Date: 20100928
  Transmission Date: 20110411
  Serious: Yes (Hospitalization)
  Sender: FDA-Public Use
  Company Number: 2010-31010

PATIENT
  Age: 63 Year
  Sex: Female
  Weight: 59 kg

DRUGS (6)
  1. DYSPORT [Suspect]
     Indication: SKIN WRINKLING
     Dosage: 30 UNITS (30 UNITS, SINGLE CYCLE),
     Dates: start: 20100831, end: 20100831
  2. RADIESSE (COSMETICS) [Concomitant]
  3. LEXAPRO [Concomitant]
  4. ACIPHEX [Concomitant]
  5. AMBIEN [Concomitant]
  6. VALTREX [Concomitant]

REACTIONS (3)
  - NECK PAIN [None]
  - ROAD TRAFFIC ACCIDENT [None]
  - TRANSIENT ISCHAEMIC ATTACK [None]
